FAERS Safety Report 14137357 (Version 2)
Quarter: 2017Q4

REPORT INFORMATION
  Report Type: Spontaneous
  Country: US (occurrence: US)
  Receive Date: 20171027
  Receipt Date: 20171227
  Transmission Date: 20180321
  Serious: Yes (Hospitalization)
  Sender: FDA-Public Use
  Company Number: US-PFIZER INC-2017463783

PATIENT
  Age: 64 Year
  Sex: Female

DRUGS (7)
  1. DOFETILIDE. [Suspect]
     Active Substance: DOFETILIDE
     Indication: ATRIAL FIBRILLATION
     Dosage: 0.5 MG, 2X/DAY
     Dates: start: 201707, end: 201710
  2. LISINOPRIL. [Concomitant]
     Active Substance: LISINOPRIL
     Indication: HYPERTENSION
     Dosage: 10 MG, 2X/DAY
  3. MAG64 [Concomitant]
     Indication: BLOOD POTASSIUM DECREASED
     Dosage: 1 DF, 2X/DAY
     Dates: start: 2016
  4. AMLODIPINE BESILATE [Concomitant]
     Active Substance: AMLODIPINE BESYLATE
     Indication: HYPERTENSION
     Dosage: 3 MG, DAILY
  5. MAG64 [Concomitant]
     Indication: BLOOD MAGNESIUM DECREASED
  6. EQUATE PAIN RELIEVER [Concomitant]
     Dosage: UNK
     Dates: start: 201408
  7. WARFARIN [Concomitant]
     Active Substance: WARFARIN
     Indication: ANTICOAGULANT THERAPY
     Dosage: 2 MG, DAILY
     Dates: start: 201408

REACTIONS (2)
  - Arrhythmia [Unknown]
  - Cardiac arrest [Unknown]
